FAERS Safety Report 18971810 (Version 4)
Quarter: 2021Q3

REPORT INFORMATION
  Report Type: Report from Study
  Country: US (occurrence: US)
  Receive Date: 20210305
  Receipt Date: 20210903
  Transmission Date: 20211014
  Serious: Yes (Death, Other)
  Sender: FDA-Public Use
  Company Number: NVSC2021US049788

PATIENT
  Sex: Female
  Weight: 45 kg

DRUGS (2)
  1. KISQALI [Suspect]
     Active Substance: RIBOCICLIB
     Indication: BREAST CANCER
     Dosage: UNK
     Route: 048
     Dates: start: 20210210, end: 20210301
  2. FEMARA [Suspect]
     Active Substance: LETROZOLE
     Indication: BREAST CANCER
     Dosage: UNK
     Route: 048
     Dates: start: 20210113, end: 20210308

REACTIONS (9)
  - Respiratory failure [Fatal]
  - Rash [Unknown]
  - Skin toxicity [Unknown]
  - Metastases to bone [Fatal]
  - Metastases to lymph nodes [Fatal]
  - Breast cancer stage IV [Fatal]
  - Wound [Unknown]
  - Metastases to lung [Fatal]
  - Metastases to skin [Fatal]
